FAERS Safety Report 5900075-4 (Version None)
Quarter: 2008Q3

REPORT INFORMATION
  Report Type: 
  Country: None (occurrence: None)
  Receive Date: 20080924
  Receipt Date: 20080917
  Transmission Date: 20090109
  Serious: Yes (Hospitalization)
  Sender: FDA-Public Use
  Company Number: VISP-NO-0809S-0461

PATIENT
  Age: 84 Year

DRUGS (2)
  1. VISIPAQUE [Suspect]
     Indication: DRUG USE FOR UNKNOWN INDICATION
     Dosage: 200 ML, SINGLE DOSE, INTRAVASCULAR
     Route: 050
     Dates: start: 20080916, end: 20080916
  2. VISIPAQUE [Suspect]

REACTIONS (3)
  - PYREXIA [None]
  - SEPSIS [None]
  - STAPHYLOCOCCAL INFECTION [None]
